FAERS Safety Report 11664726 (Version 1)
Quarter: 2015Q4

REPORT INFORMATION
  Report Type: Spontaneous
  Country: US (occurrence: None)
  Receive Date: 20151026
  Receipt Date: 20151026
  Transmission Date: 20160304
  Serious: Yes (Disabling)
  Sender: FDA-Public Use
  Company Number: None

PATIENT
  Age: 39 Year
  Sex: Female
  Weight: 73.94 kg

DRUGS (23)
  1. TRAMADOL. [Concomitant]
     Active Substance: TRAMADOL
  2. VIT A [Concomitant]
  3. VITAMIN C [Concomitant]
     Active Substance: ASCORBIC ACID
  4. VITAMIN E [Concomitant]
     Active Substance: .ALPHA.-TOCOPHEROL
  5. AVELOX [Suspect]
     Active Substance: MOXIFLOXACIN HYDROCHLORIDE
     Indication: UPPER RESPIRATORY TRACT INFECTION
     Dosage: 1 PILL ONCE DAILY
     Route: 048
  6. VIT B [Concomitant]
     Active Substance: VITAMINS
  7. VITAMIN B12 [Concomitant]
     Active Substance: CYANOCOBALAMIN
  8. VITAMIN D [Concomitant]
     Active Substance: CHOLECALCIFEROL
  9. CANE [Concomitant]
  10. NALTREXONE [Concomitant]
     Active Substance: NALTREXONE
  11. GLUTATHION [Concomitant]
  12. ACCUPUNCTURE [Concomitant]
  13. CRUTCHES [Concomitant]
  14. STOOLS [Concomitant]
  15. MAGNESIUM CITRATE. [Concomitant]
     Active Substance: MAGNESIUM CITRATE
  16. SELENIUM [Concomitant]
     Active Substance: SELENIUM
  17. COQ10 [Concomitant]
     Active Substance: UBIDECARENONE
  18. WHEELCHAIR [Concomitant]
     Active Substance: DEVICE
  19. SYNTHROID [Concomitant]
     Active Substance: LEVOTHYROXINE SODIUM
  20. AVELOX [Suspect]
     Active Substance: MOXIFLOXACIN HYDROCHLORIDE
     Indication: OROPHARYNGEAL PAIN
     Dosage: 1 PILL ONCE DAILY
     Route: 048
  21. CHIA SEEDS [Concomitant]
     Active Substance: OMEGA-3 FATTY ACIDS
  22. CHINESE HERBS [Concomitant]
     Active Substance: HERBALS
  23. ALPHA LIPIOD [Concomitant]

REACTIONS (41)
  - Dysstasia [None]
  - Pain in extremity [None]
  - Myalgia [None]
  - Arthralgia [None]
  - Feeling abnormal [None]
  - Bradyphrenia [None]
  - Memory impairment [None]
  - Eye pain [None]
  - Cognitive disorder [None]
  - Parosmia [None]
  - Visual evoked potentials abnormal [None]
  - Abasia [None]
  - Coordination abnormal [None]
  - Flushing [None]
  - Pain [None]
  - Gait disturbance [None]
  - Impaired healing [None]
  - Fibromyalgia [None]
  - Asthenia [None]
  - Muscle twitching [None]
  - Pyrexia [None]
  - Intelligence test abnormal [None]
  - Thyroid disorder [None]
  - Multiple sclerosis [None]
  - Micturition urgency [None]
  - Migraine [None]
  - Skin wrinkling [None]
  - Impaired work ability [None]
  - Muscle spasms [None]
  - Vitreous floaters [None]
  - Visual impairment [None]
  - Impaired driving ability [None]
  - Reading disorder [None]
  - Malaise [None]
  - Weight bearing difficulty [None]
  - Balance disorder [None]
  - Limb discomfort [None]
  - Grip strength decreased [None]
  - Aphasia [None]
  - Glassy eyes [None]
  - Neuropathy peripheral [None]

NARRATIVE: CASE EVENT DATE: 20070420
